FAERS Safety Report 5287835-0 (Version None)
Quarter: 2007Q1

REPORT INFORMATION
  Report Type: 
  Country: None (occurrence: None)
  Receive Date: 20070112
  Receipt Date: 20060413
  Transmission Date: 20070707
  Serious: Yes (Other)
  Sender: FDA-Public Use
  Company Number: PHEH2006US04914

PATIENT
  Sex: Male

DRUGS (1)
  1. FOCALIN [Suspect]
     Dosage: 10 MG,BID,ORAL
     Route: 048

REACTIONS (1)
  - CONVULSION [None]
